FAERS Safety Report 6633952-X (Version None)
Quarter: 2010Q1

REPORT INFORMATION
  Report Type: 
  Country: None (occurrence: None)
  Receive Date: 20100315
  Receipt Date: 20100308
  Transmission Date: 20100710
  Serious: Yes (Hospitalization)
  Sender: FDA-Public Use
  Company Number: FR-JNJFOC-20091000144

PATIENT
  Sex: Female

DRUGS (8)
  1. DURAGESIC-100 [Suspect]
     Indication: PAIN
     Route: 062
     Dates: start: 20071101, end: 20080107
  2. ACTISKENAN [Suspect]
     Indication: HERPES ZOSTER
     Route: 048
     Dates: start: 20071101, end: 20080107
  3. LAMALINE [Suspect]
     Indication: PAIN
     Route: 048
     Dates: start: 20071101, end: 20080107
  4. NOVONORM [Concomitant]
     Route: 065
  5. LASILIX [Concomitant]
     Route: 065
  6. IRON [Concomitant]
     Route: 065
  7. TEMERIT [Concomitant]
     Route: 065
  8. REMINYL [Concomitant]
     Route: 065

REACTIONS (1)
  - DISORIENTATION [None]
